FAERS Safety Report 24762006 (Version 2)
Quarter: 2025Q1

REPORT INFORMATION
  Report Type: Spontaneous
  Country: ZA (occurrence: ZA)
  Receive Date: 20241221
  Receipt Date: 20250120
  Transmission Date: 20250409
  Serious: Yes (Other)
  Sender: HETERO
  Company Number: ZA-AMAROX PHARMA-HET2024ZA04903

PATIENT
  Sex: Female

DRUGS (1)
  1. FINGOLIMOD [Suspect]
     Active Substance: FINGOLIMOD
     Indication: Multiple sclerosis
     Route: 048
     Dates: start: 20240521

REACTIONS (4)
  - Fall [Recovered/Resolved]
  - Skin laceration [Recovered/Resolved]
  - Wound [Recovered/Resolved]
  - Diarrhoea [Recovered/Resolved]
